FAERS Safety Report 14304257 (Version 1)
Quarter: 2017Q4

REPORT INFORMATION
  Report Type: Spontaneous
  Country: FR (occurrence: FR)
  Receive Date: 20171219
  Receipt Date: 20171219
  Transmission Date: 20180321
  Serious: Yes (Death, Other)
  Sender: FDA-Public Use
  Company Number: FR-OTSUKA-DJ201402234

PATIENT
  Age: 29 Year
  Sex: Female

DRUGS (9)
  1. RISPERDAL [Suspect]
     Active Substance: RISPERIDONE
     Indication: ANXIETY
     Dosage: INCREASED TO 8MG/DAY
     Route: 048
     Dates: start: 20140121, end: 20140211
  2. TERCIAN [Suspect]
     Active Substance: CYAMEMAZINE
     Indication: AGITATION
     Dosage: UNK
     Route: 065
     Dates: start: 20140121, end: 20140209
  3. TERCIAN [Suspect]
     Active Substance: CYAMEMAZINE
     Indication: AGITATION
     Dosage: UNK
     Route: 065
     Dates: start: 20140209
  4. LYSANXIA [Suspect]
     Active Substance: PRAZEPAM
     Indication: PRODUCT USED FOR UNKNOWN INDICATION
     Dosage: UNK
     Route: 048
     Dates: start: 20140206, end: 20140211
  5. OPC-14597 [Suspect]
     Active Substance: CILOSTAZOL
     Indication: PRODUCT USED FOR UNKNOWN INDICATION
     Dosage: 7.5 MG, UNK
     Route: 030
     Dates: start: 20140211
  6. PARKINANE [Concomitant]
     Active Substance: TRIHEXYPHENIDYL HYDROCHLORIDE
     Indication: PRODUCT USED FOR UNKNOWN INDICATION
     Dosage: UNK
     Route: 048
     Dates: start: 20140205, end: 20140211
  7. TERCIAN [Suspect]
     Active Substance: CYAMEMAZINE
     Indication: ANXIETY
  8. VALIUM [Suspect]
     Active Substance: DIAZEPAM
     Indication: ANXIETY
     Dosage: UNK
     Route: 048
     Dates: start: 20140121
  9. MOVICOL [Concomitant]
     Active Substance: POLYETHYLENE GLYCOL 3350\POTASSIUM CHLORIDE\SODIUM BICARBONATE\SODIUM CHLORIDE
     Indication: PRODUCT USED FOR UNKNOWN INDICATION
     Dosage: UNK
     Route: 065

REACTIONS (5)
  - Cardio-respiratory arrest [Fatal]
  - Aspiration [Fatal]
  - Tracheal obstruction [Fatal]
  - Dysphagia [Fatal]
  - Sudden death [Fatal]

NARRATIVE: CASE EVENT DATE: 20140211
